FAERS Safety Report 6394640-0 (Version None)
Quarter: 2009Q4

REPORT INFORMATION
  Report Type: 
  Country: None (occurrence: None)
  Receive Date: 20091009
  Receipt Date: 20091002
  Transmission Date: 20100525
  Serious: No
  Sender: FDA-Public Use
  Company Number: US-JNJFOC-20091001558

PATIENT
  Sex: Female

DRUGS (1)
  1. DURAGESIC-100 [Suspect]
     Indication: PAIN
     Route: 062
     Dates: start: 20090930

REACTIONS (5)
  - HEADACHE [None]
  - HYPOAESTHESIA FACIAL [None]
  - INCORRECT DRUG ADMINISTRATION DURATION [None]
  - NECK PAIN [None]
  - PRODUCT QUALITY ISSUE [None]
